FAERS Safety Report 5635643-0 (Version None)
Quarter: 2008Q1

REPORT INFORMATION
  Report Type: 
  Country: None (occurrence: None)
  Receive Date: 20080220
  Receipt Date: 20080206
  Transmission Date: 20080703
  Serious: No
  Sender: FDA-Public Use
  Company Number: B0505346A

PATIENT
  Age: 45 Year
  Sex: Female

DRUGS (4)
  1. PAROXETINE HCL [Suspect]
     Indication: ANXIETY DISORDER
     Dosage: ORAL
     Route: 048
     Dates: start: 20040910, end: 20061001
  2. ALPRAZOLAM [Concomitant]
  3. QUAZEPAM [Concomitant]
  4. BROTIZOLAM [Concomitant]

REACTIONS (5)
  - ALTERED STATE OF CONSCIOUSNESS [None]
  - DRUG WITHDRAWAL SYNDROME [None]
  - FEELING ABNORMAL [None]
  - HALLUCINATION [None]
  - TREATMENT NONCOMPLIANCE [None]
